FAERS Safety Report 8980353 (Version 2)
Quarter: 2013Q1

REPORT INFORMATION
  Report Type: Report from Study
  Country: FR (occurrence: FR)
  Receive Date: 20121221
  Receipt Date: 20130318
  Transmission Date: 20140127
  Serious: No
  Sender: FDA-Public Use
  Company Number: PHHY2012FR116381

PATIENT
  Age: 37 Year
  Sex: Male
  Weight: 63 kg

DRUGS (1)
  1. TASIGNA [Suspect]
     Indication: CHRONIC MYELOID LEUKAEMIA
     Dosage: 400 MG, BID
     Route: 048
     Dates: start: 20120514

REACTIONS (2)
  - Cell death [Not Recovered/Not Resolved]
  - Biliary tract disorder [Not Recovered/Not Resolved]
